FAERS Safety Report 5857273-8 (Version None)
Quarter: 2008Q3

REPORT INFORMATION
  Report Type: 
  Country: None (occurrence: None)
  Receive Date: 20080822
  Receipt Date: 20080814
  Transmission Date: 20090109
  Serious: Yes (Life-Threatening)
  Sender: FDA-Public Use
  Company Number: CIP08001567

PATIENT
  Sex: Female

DRUGS (4)
  1. ASACOL [Suspect]
     Dosage: ORAL
     Route: 048
  2. REMICADE [Suspect]
  3. STEROID ANTIBACTERIALS [Concomitant]
  4. UNSPECIFIED STEROIDS [Concomitant]

REACTIONS (1)
  - ADVERSE DRUG REACTION [None]
